FAERS Safety Report 5721702-0 (Version None)
Quarter: 2008Q2

REPORT INFORMATION
  Report Type: 
  Country: None (occurrence: None)
  Receive Date: 20080429
  Receipt Date: 20070427
  Transmission Date: 20081010
  Serious: No
  Sender: FDA-Public Use
  Company Number: US-ASTRAZENECA-2007UW08331

PATIENT
  Age: 66 Year
  Sex: Female
  Weight: 61.2 kg

DRUGS (6)
  1. NEXIUM [Suspect]
     Indication: GASTROOESOPHAGEAL REFLUX DISEASE
     Dosage: SOMETIMES BID
     Route: 048
     Dates: start: 20060101
  2. FIORICET [Concomitant]
  3. XANAX [Concomitant]
  4. DITROPAN XL [Concomitant]
  5. LIDODERM [Concomitant]
  6. TYLENOL [Concomitant]
     Route: 048

REACTIONS (3)
  - DYSPHONIA [None]
  - HEADACHE [None]
  - RHINITIS [None]
